FAERS Safety Report 25411982 (Version 1)
Quarter: 2025Q2

REPORT INFORMATION
  Report Type: Spontaneous
  Country: US (occurrence: US)
  Receive Date: 20250609
  Receipt Date: 20250609
  Transmission Date: 20250716
  Serious: Yes (Other)
  Sender: RANBAXY
  Company Number: US-SUN PHARMACEUTICAL INDUSTRIES LTD-2020R1-238603

PATIENT

DRUGS (1)
  1. LEVULAN KERASTICK [Suspect]
     Active Substance: AMINOLEVULINIC ACID HYDROCHLORIDE
     Indication: Actinic keratosis
     Route: 061

REACTIONS (6)
  - Haemorrhage [Unknown]
  - Herpes zoster [Unknown]
  - Skin burning sensation [Unknown]
  - Blister [Unknown]
  - Swelling face [Unknown]
  - Pain of skin [Unknown]
